FAERS Safety Report 5593957-7 (Version None)
Quarter: 2007Q4

REPORT INFORMATION
  Report Type: 
  Country: None (occurrence: None)
  Receive Date: 20071218
  Receipt Date: 20070515
  Transmission Date: 20080405
  Serious: Yes (Other)
  Sender: FDA-Public Use
  Company Number: 2007039508

PATIENT
  Age: 44 Year
  Sex: Male
  Weight: 140.6 kg

DRUGS (3)
  1. BEXTRA [Suspect]
     Indication: ARTHRALGIA
     Dosage: (20 MG)
     Dates: start: 20030101
  2. BEXTRA [Suspect]
     Indication: BACK PAIN
     Dosage: (20 MG)
     Dates: start: 20030101
  3. BEXTRA [Suspect]
     Indication: MUSCULOSKELETAL PAIN
     Dosage: (20 MG)
     Dates: start: 20030101

REACTIONS (1)
  - MYOCARDIAL INFARCTION [None]
